FAERS Safety Report 10201020 (Version 2)
Quarter: 2014Q2

REPORT INFORMATION
  Report Type: Report from Study
  Country: MY (occurrence: MY)
  Receive Date: 20140528
  Receipt Date: 20140528
  Transmission Date: 20141212
  Serious: Yes (Death, Life-Threatening)
  Sender: FDA-Public Use
  Company Number: PHHY2014MY053091

PATIENT
  Sex: Female

DRUGS (2)
  1. GLIVEC [Suspect]
     Indication: CHRONIC MYELOID LEUKAEMIA
     Dosage: 800 MG
  2. AMLODIPINE [Concomitant]
     Dosage: 5 MG, QD

REACTIONS (2)
  - Pneumonia [Fatal]
  - Blast crisis in myelogenous leukaemia [Not Recovered/Not Resolved]
